FAERS Safety Report 9647919 (Version 1)
Quarter: 2013Q4

REPORT INFORMATION
  Report Type: Spontaneous
  Country: US (occurrence: None)
  Receive Date: 20131024
  Receipt Date: 20131024
  Transmission Date: 20140711
  Serious: Yes (Hospitalization, Disabling)
  Sender: FDA-Public Use
  Company Number: None

PATIENT
  Age: 47 Year
  Sex: Female
  Weight: 54.43 kg

DRUGS (1)
  1. BACLOFEN INTRATHECAL [Suspect]

REACTIONS (5)
  - Swelling [None]
  - Abasia [None]
  - Asthenia [None]
  - Pain [None]
  - Drug hypersensitivity [None]
